FAERS Safety Report 7444809-9 (Version None)
Quarter: 2011Q2

REPORT INFORMATION
  Report Type: 
  Country: None (occurrence: None)
  Receive Date: 20110426
  Receipt Date: 20110426
  Transmission Date: 20111010
  Serious: No
  Sender: FDA-Public Use
  Company Number: None

PATIENT
  Age: 55 Year
  Sex: Female
  Weight: 88.4514 kg

DRUGS (1)
  1. CHANTIX [Suspect]
     Indication: SMOKING CESSATION THERAPY
     Dosage: IXS A /DAY 3 DAYS/THEN PO BID PO
     Route: 048
     Dates: start: 20110326, end: 20110420

REACTIONS (8)
  - NAUSEA [None]
  - DIPLOPIA [None]
  - HEADACHE [None]
  - NEUROLOGICAL SYMPTOM [None]
  - MONOPLEGIA [None]
  - MUSCLE SPASMS [None]
  - VOMITING [None]
  - CONSTIPATION [None]
